FAERS Safety Report 18252001 (Version 1)
Quarter: 2020Q3

REPORT INFORMATION
  Report Type: Spontaneous
  Country: RO (occurrence: RO)
  Receive Date: 20200910
  Receipt Date: 20200910
  Transmission Date: 20201103
  Serious: Yes (Other)
  Sender: FDA-Public Use
  Company Number: RO-AMGEN-ROUSP2020145920

PATIENT
  Age: 52 Year
  Sex: Male
  Weight: 125 kg

DRUGS (2)
  1. ENBREL [Suspect]
     Active Substance: ETANERCEPT
     Indication: PSORIASIS
     Dosage: 50 MG, WEEKLY
     Route: 065
     Dates: start: 201909
  2. ISONIAZID. [Concomitant]
     Active Substance: ISONIAZID
     Indication: PROPHYLACTIC CHEMOTHERAPY
     Dosage: UNK

REACTIONS (23)
  - Gamma-glutamyltransferase abnormal [Unknown]
  - Hepatic cirrhosis [Unknown]
  - Abdominal distension [Unknown]
  - Haematocrit decreased [Unknown]
  - Pancytopenia [Unknown]
  - Venous injury [Unknown]
  - Abdominal pain [Unknown]
  - Splenomegaly [Unknown]
  - Skin lesion [Unknown]
  - Weight decreased [Unknown]
  - Thrombocytopenia [Unknown]
  - Haemoglobin decreased [Unknown]
  - Degenerative bone disease [Unknown]
  - Hepatic failure [Unknown]
  - Condition aggravated [Unknown]
  - Hepatocellular injury [Unknown]
  - Oedema peripheral [Unknown]
  - Red blood cell sedimentation rate increased [Unknown]
  - Hepatomegaly [Unknown]
  - Skin hyperpigmentation [Unknown]
  - Aspartate aminotransferase increased [Unknown]
  - Cholestasis [Unknown]
  - Proteinuria [Unknown]

NARRATIVE: CASE EVENT DATE: 202001
